FAERS Safety Report 6846811-4 (Version None)
Quarter: 2010Q3

REPORT INFORMATION
  Report Type: 
  Country: None (occurrence: None)
  Receive Date: 20100715
  Receipt Date: 20070919
  Transmission Date: 20110219
  Serious: No
  Sender: FDA-Public Use
  Company Number: US-PFIZER INC-2007080315

PATIENT
  Sex: Female

DRUGS (6)
  1. CHANTIX [Suspect]
     Indication: SMOKING CESSATION THERAPY
     Route: 048
     Dates: start: 20070909
  2. THEOPHYLLINE [Concomitant]
     Indication: CHRONIC OBSTRUCTIVE PULMONARY DISEASE
  3. VALIUM [Concomitant]
  4. MAXZIDE [Concomitant]
  5. ALBUTEROL [Concomitant]
  6. SOMA [Concomitant]

REACTIONS (3)
  - DRY MOUTH [None]
  - SOMNOLENCE [None]
  - VOMITING [None]
